FAERS Safety Report 6506363-5 (Version None)
Quarter: 2009Q4

REPORT INFORMATION
  Report Type: 
  Country: None (occurrence: None)
  Receive Date: 20091218
  Receipt Date: 20091210
  Transmission Date: 20100525
  Serious: Yes (Death)
  Sender: FDA-Public Use
  Company Number: GB-WATSON-2009-10664

PATIENT
  Age: 45 Year
  Sex: Female

DRUGS (7)
  1. TEMAZEPAM [Suspect]
     Indication: DRUG USE FOR UNKNOWN INDICATION
     Dosage: UNK
     Route: 065
  2. TRAMADOL HCL [Suspect]
     Indication: ABDOMINAL PAIN UPPER
     Dosage: UNK
     Route: 065
  3. AMITRIPTYLINE [Suspect]
     Indication: DEPRESSION
     Dosage: UNK
     Route: 065
  4. CODEINE [Suspect]
     Indication: ABDOMINAL PAIN UPPER
     Dosage: UNK
     Route: 065
  5. ORAMORPH SR [Suspect]
     Indication: ABDOMINAL PAIN UPPER
     Dosage: UNK
     Route: 065
  6. OXYNORM [Suspect]
     Indication: ABDOMINAL PAIN UPPER
     Dosage: UNK
     Route: 065
  7. PARACETAMOL [Suspect]
     Indication: ABDOMINAL PAIN UPPER
     Dosage: UNK
     Route: 065

REACTIONS (1)
  - MULTIPLE DRUG OVERDOSE [None]
